FAERS Safety Report 12909108 (Version 1)
Quarter: 2016Q4

REPORT INFORMATION
  Report Type: Spontaneous
  Country: US (occurrence: US)
  Receive Date: 20161103
  Receipt Date: 20161103
  Transmission Date: 20170207
  Serious: No
  Sender: FDA-Public Use
  Company Number: US-JAZZ-2016-US-017028

PATIENT
  Age: 19 Year
  Sex: Female
  Weight: 65.76 kg

DRUGS (33)
  1. CHARCOAL [Concomitant]
     Active Substance: ACTIVATED CHARCOAL
  2. CHLORELLA [Concomitant]
  3. FISH OIL [Concomitant]
     Active Substance: FISH OIL
  4. FOLINIC ACID [Concomitant]
     Active Substance: LEUCOVORIN
  5. HYDROCORTISONE. [Concomitant]
     Active Substance: HYDROCORTISONE
  6. PROBIOTIC [Concomitant]
     Active Substance: PROBIOTICS NOS
  7. TIZANIDINE HCL [Concomitant]
     Active Substance: TIZANIDINE HYDROCHLORIDE
  8. AMITRIPTYLINE HCL [Concomitant]
     Active Substance: AMITRIPTYLINE
  9. MULTIVITAMINS [Concomitant]
     Active Substance: VITAMINS
  10. NORTREL [Concomitant]
     Active Substance: ETHINYL ESTRADIOL\NORETHINDRONE
  11. TRAZODONE [Concomitant]
     Active Substance: TRAZODONE HYDROCHLORIDE
  12. GABAPENTIN. [Concomitant]
     Active Substance: GABAPENTIN
  13. REVITALIZING NIGHT [Concomitant]
  14. NYSTATIN. [Concomitant]
     Active Substance: NYSTATIN
  15. AMBIEN [Concomitant]
     Active Substance: ZOLPIDEM TARTRATE
  16. COENZYME Q10 [Concomitant]
     Active Substance: UBIDECARENONE
  17. SALT [Concomitant]
     Active Substance: SODIUM CHLORIDE
  18. TRAMADOL HCL [Concomitant]
     Active Substance: TRAMADOL HYDROCHLORIDE
  19. SPORANOX [Concomitant]
     Active Substance: ITRACONAZOLE
  20. OSTEO-BI-FLEX [Concomitant]
  21. POTASSIUM CL [Concomitant]
     Active Substance: POTASSIUM CHLORIDE
  22. VALTREX [Concomitant]
     Active Substance: VALACYCLOVIR HYDROCHLORIDE
  23. 5-HTP [Concomitant]
     Active Substance: OXITRIPTAN
  24. CELECOXIB. [Concomitant]
     Active Substance: CELECOXIB
  25. MAGNESIUM OXIDE. [Concomitant]
     Active Substance: MAGNESIUM OXIDE
  26. TOPIRAMATE. [Concomitant]
     Active Substance: TOPIRAMATE
  27. XYREM [Suspect]
     Active Substance: SODIUM OXYBATE
     Indication: NARCOLEPSY
     Dosage: 1.15 G, BID
     Route: 048
     Dates: start: 20160822, end: 20160827
  28. CHOLESTYRAMINE. [Concomitant]
     Active Substance: CHOLESTYRAMINE
  29. STRONTIUM CHLORIDE [Concomitant]
     Active Substance: STRONTIUM CHLORIDE
  30. VITAMIN B12 [Concomitant]
     Active Substance: CYANOCOBALAMIN
  31. ZINC [Concomitant]
     Active Substance: ZINC\ZINC CHLORIDE
  32. CALCIUM CITRATE [Concomitant]
     Active Substance: CALCIUM CITRATE
  33. MIDODRINE HCL [Concomitant]
     Active Substance: MIDODRINE HYDROCHLORIDE

REACTIONS (3)
  - Nausea [Recovered/Resolved]
  - Sedation [Recovered/Resolved]
  - Dizziness [Recovered/Resolved]

NARRATIVE: CASE EVENT DATE: 201608
